FAERS Safety Report 8059691-9 (Version None)
Quarter: 2012Q1

REPORT INFORMATION
  Report Type: 
  Country: None (occurrence: None)
  Receive Date: 20120120
  Receipt Date: 20120113
  Transmission Date: 20120608
  Serious: Yes (Other)
  Sender: FDA-Public Use
  Company Number: PHEH2011US011665

PATIENT
  Sex: Female
  Weight: 79.365 kg

DRUGS (4)
  1. GILENYA [Suspect]
     Indication: MULTIPLE SCLEROSIS
     Dosage: 0.5 MG, QD
     Route: 048
     Dates: start: 20111129
  2. KOMBIGLYZE XR [Concomitant]
     Indication: DIABETES MELLITUS
  3. BETASERON [Concomitant]
     Indication: MULTIPLE SCLEROSIS
  4. LOSARTAN POTASSIUM [Concomitant]
     Indication: HYPERTENSION

REACTIONS (5)
  - PERIPHERAL COLDNESS [None]
  - HEART RATE INCREASED [None]
  - BLOOD PRESSURE INCREASED [None]
  - PULSE PRESSURE DECREASED [None]
  - ASTHENIA [None]
